FAERS Safety Report 15832698 (Version 2)
Quarter: 2020Q2

REPORT INFORMATION
  Report Type: Report from Study
  Country: None (occurrence: FR)
  Receive Date: 20190116
  Receipt Date: 20200604
  Transmission Date: 20200713
  Serious: Yes (Other)
  Sender: FDA-Public Use
  Company Number: FR-BAUSCH-BL-2019-001255

PATIENT
  Age: 71 Year
  Sex: Male

DRUGS (5)
  1. BRIMONIDINE [Suspect]
     Active Substance: BRIMONIDINE TARTRATE
     Indication: OPEN ANGLE GLAUCOMA
     Route: 061
  2. DORZOLAMIDE [Concomitant]
     Active Substance: DORZOLAMIDE
     Indication: OPEN ANGLE GLAUCOMA
     Route: 061
  3. BENZALKONIUM CHLORIDE. [Suspect]
     Active Substance: BENZALKONIUM CHLORIDE
     Indication: OPEN ANGLE GLAUCOMA
     Route: 061
  4. BIMATOPROST. [Suspect]
     Active Substance: BIMATOPROST
     Indication: OPEN ANGLE GLAUCOMA
     Route: 061
  5. INDOMETHACIN. [Suspect]
     Active Substance: INDOMETHACIN
     Indication: OPEN ANGLE GLAUCOMA
     Dosage: PRESERVATIVE FREE
     Route: 061

REACTIONS (4)
  - Rosacea [Unknown]
  - Ocular hyperaemia [Recovering/Resolving]
  - Blepharitis [Unknown]
  - Therapy non-responder [Unknown]
